FAERS Safety Report 4392270-3 (Version None)
Quarter: 2004Q3

REPORT INFORMATION
  Report Type: 
  Country: None (occurrence: None)
  Receive Date: 20040702
  Receipt Date: 20040217
  Transmission Date: 20050211
  Serious: Yes (Other)
  Sender: FDA-Public Use
  Company Number: 2004UW02864

PATIENT
  Age: 73 Year
  Sex: Female

DRUGS (4)
  1. CRESTOR [Suspect]
     Dosage: 10 MG DAILY
  2. MULTIVITAMIN [Concomitant]
  3. CALCIUM [Concomitant]
  4. HORMONES [Concomitant]

REACTIONS (1)
  - WEIGHT INCREASED [None]
